FAERS Safety Report 15547059 (Version 2)
Quarter: 2018Q4

REPORT INFORMATION
  Report Type: Spontaneous
  Country: AU (occurrence: AU)
  Receive Date: 20181024
  Receipt Date: 20181109
  Transmission Date: 20190205
  Serious: Yes (Other)
  Sender: FDA-Public Use
  Company Number: AU-ASTRAZENECA-2018SF37172

PATIENT
  Age: 54 Year
  Sex: Female

DRUGS (10)
  1. ABEMACICLIB [Suspect]
     Active Substance: ABEMACICLIB
     Indication: BREAST CANCER METASTATIC
     Route: 048
     Dates: start: 20180815, end: 20180914
  2. PREGABALIN. [Concomitant]
     Active Substance: PREGABALIN
     Indication: HEPATIC PAIN
     Route: 048
     Dates: start: 20180522
  3. ZYBAN [Concomitant]
     Active Substance: BUPROPION HYDROCHLORIDE
     Indication: AFFECTIVE DISORDER
     Route: 048
     Dates: start: 20000522
  4. TEMAZEPAM. [Concomitant]
     Active Substance: TEMAZEPAM
     Dosage: 10MG PRN
  5. FULVESTRANT. [Suspect]
     Active Substance: FULVESTRANT
     Indication: BREAST CANCER METASTATIC
     Dosage: 500 MG
     Route: 030
     Dates: start: 20180815, end: 20180914
  6. FULVESTRANT. [Suspect]
     Active Substance: FULVESTRANT
     Indication: METASTASES TO LIVER
     Dosage: 500 MG
     Route: 030
     Dates: start: 20180815, end: 20180914
  7. MS CONTIN [Concomitant]
     Active Substance: MORPHINE SULFATE
     Indication: HEPATIC PAIN
     Route: 048
     Dates: start: 20180522
  8. DEXAMETHASONE. [Concomitant]
     Active Substance: DEXAMETHASONE
     Indication: HEPATIC PAIN
     Dosage: 4 MG PRN
     Route: 048
     Dates: start: 20180522
  9. PAROXETINE. [Concomitant]
     Active Substance: PAROXETINE
  10. PANTOPRAZOLE [Concomitant]
     Active Substance: PANTOPRAZOLE

REACTIONS (3)
  - Malignant neoplasm progression [Unknown]
  - Bile duct obstruction [Unknown]
  - Drug ineffective [Unknown]

NARRATIVE: CASE EVENT DATE: 20180911
